FAERS Safety Report 9797862 (Version 1)
Quarter: 2014Q1

REPORT INFORMATION
  Report Type: Spontaneous
  Country: US (occurrence: US)
  Receive Date: 20140106
  Receipt Date: 20140106
  Transmission Date: 20141002
  Serious: Yes (Other)
  Sender: FDA-Public Use
  Company Number: US-BAYER-2014-001606

PATIENT
  Age: 17 Year
  Sex: Female
  Weight: 67.57 kg

DRUGS (3)
  1. YAZ [Suspect]
  2. YASMIN [Suspect]
  3. TYLENOL [PARACETAMOL] [Concomitant]
     Indication: BACK PAIN
     Route: 048

REACTIONS (1)
  - Deep vein thrombosis [Recovered/Resolved]
